FAERS Safety Report 25020068 (Version 1)
Quarter: 2025Q1

REPORT INFORMATION
  Report Type: Report from Study
  Country: US (occurrence: US)
  Receive Date: 20250227
  Receipt Date: 20250227
  Transmission Date: 20250409
  Serious: Yes (Other)
  Sender: BAYER HEALTHCARE PHARMACEUTICALS INC.
  Company Number: US-BAYER-2025A022158

PATIENT
  Age: 80 Year
  Sex: Male

DRUGS (1)
  1. STIVARGA [Suspect]
     Active Substance: REGORAFENIB MONOHYDRATE
     Indication: Colorectal cancer
     Dosage: 160 MG, QD, FOR 21 DAYS AND 7 DAYS OFF
     Route: 048
     Dates: start: 20250117, end: 20250202

REACTIONS (8)
  - Dyspnoea [Unknown]
  - Hypersensitivity [Unknown]
  - Dysstasia [Unknown]
  - Eye pain [Unknown]
  - Visual impairment [Unknown]
  - Diarrhoea [Unknown]
  - Feeding disorder [Unknown]
  - Hospice care [None]

NARRATIVE: CASE EVENT DATE: 20250202
